FAERS Safety Report 6348287-2 (Version None)
Quarter: 2009Q3

REPORT INFORMATION
  Report Type: 
  Country: None (occurrence: None)
  Receive Date: 20090908
  Receipt Date: 20090902
  Transmission Date: 20100115
  Serious: Yes (Hospitalization, Other)
  Sender: FDA-Public Use
  Company Number: JP-1170186

PATIENT
  Age: 66 Year
  Sex: Female

DRUGS (1)
  1. BSS PLUS [Suspect]
     Dosage: 500 ML INTRAOCULAR
     Route: 031
     Dates: start: 20090702, end: 20090702

REACTIONS (4)
  - ANTERIOR CHAMBER CELL [None]
  - ANTERIOR CHAMBER FIBRIN [None]
  - UVEITIS [None]
  - VITREOUS OPACITIES [None]
